FAERS Safety Report 5399864-7 (Version None)
Quarter: 2007Q3

REPORT INFORMATION
  Report Type: 
  Country: None (occurrence: None)
  Receive Date: 20070730
  Receipt Date: 20070718
  Transmission Date: 20080115
  Serious: Yes (Other)
  Sender: FDA-Public Use
  Company Number: PHMT2007CA01599

PATIENT
  Age: 70 Year
  Sex: Male

DRUGS (2)
  1. EXELON [Suspect]
     Indication: DEMENTIA ALZHEIMER'S TYPE
     Route: 048
     Dates: start: 20060527, end: 20061207
  2. ANTICHOLINERGICS [Suspect]
     Indication: PROSTATIC DISORDER

REACTIONS (3)
  - DRUG INTERACTION [None]
  - DYSURIA [None]
  - POLLAKIURIA [None]
